FAERS Safety Report 6983174-8 (Version None)
Quarter: 2010Q3

REPORT INFORMATION
  Report Type: 
  Country: None (occurrence: None)
  Receive Date: 20100914
  Receipt Date: 20100624
  Transmission Date: 20110219
  Serious: Yes (Other)
  Sender: FDA-Public Use
  Company Number: US-PFIZER INC-2010079854

PATIENT
  Sex: Female
  Weight: 63.9 kg

DRUGS (2)
  1. LYRICA [Suspect]
     Indication: LIMB INJURY
     Dosage: UNK
     Route: 048
     Dates: start: 20100407, end: 20100510
  2. ZIAC [Concomitant]
     Dosage: UNK

REACTIONS (3)
  - HEADACHE [None]
  - MUSCLE SPASMS [None]
  - PAIN IN EXTREMITY [None]
